FAERS Safety Report 14040283 (Version 6)
Quarter: 2018Q1

REPORT INFORMATION
  Report Type: Report from Study
  Country: US (occurrence: US)
  Receive Date: 20171004
  Receipt Date: 20180115
  Transmission Date: 20180508
  Serious: Yes (Death, Hospitalization)
  Sender: FDA-Public Use
  Company Number: US-ACTELION-A-NJ2017-158466

PATIENT
  Age: 66 Year
  Sex: Female
  Weight: 74.38 kg

DRUGS (6)
  1. ADCIRCA [Concomitant]
     Active Substance: TADALAFIL
  2. VELETRI [Suspect]
     Active Substance: EPOPROSTENOL
     Dosage: 15.5 NG/KG, PER MIN
     Route: 042
  3. LETAIRIS [Concomitant]
     Active Substance: AMBRISENTAN
  4. VELETRI [Suspect]
     Active Substance: EPOPROSTENOL
     Dosage: 5.75 NG/KG, PER MIN
     Route: 042
  5. VELETRI [Suspect]
     Active Substance: EPOPROSTENOL
     Indication: PULMONARY HYPERTENSION
     Dosage: 17 NG/KG, PER MIN
     Route: 042
  6. VELETRI [Suspect]
     Active Substance: EPOPROSTENOL
     Dosage: 7.5 NG/KG, CONT INFUS
     Route: 042

REACTIONS (26)
  - Malaise [Unknown]
  - Accidental overdose [Unknown]
  - Abdominal pain [Unknown]
  - Asthenia [Unknown]
  - Scleroderma [Unknown]
  - Dermatitis contact [Not Recovered/Not Resolved]
  - Pyrexia [Unknown]
  - Headache [Unknown]
  - Pain in jaw [Unknown]
  - Acute kidney injury [Unknown]
  - Pulmonary arterial hypertension [Unknown]
  - Fluid retention [Unknown]
  - Nausea [Unknown]
  - Dyspnoea [Unknown]
  - Death [Fatal]
  - Application site pruritus [Unknown]
  - Blood creatine abnormal [Unknown]
  - Respiratory failure [Unknown]
  - Oedema [Unknown]
  - Nasopharyngitis [Unknown]
  - Catheter site erythema [Unknown]
  - Diarrhoea [Unknown]
  - Pain in extremity [Unknown]
  - Cardiorenal syndrome [Unknown]
  - Catheter site pruritus [Unknown]
  - Hot flush [Unknown]

NARRATIVE: CASE EVENT DATE: 20180105
